FAERS Safety Report 5899800-0 (Version None)
Quarter: 2008Q3

REPORT INFORMATION
  Report Type: 
  Country: None (occurrence: None)
  Receive Date: 20080924
  Receipt Date: 20080912
  Transmission Date: 20090109
  Serious: Yes (Hospitalization, Other)
  Sender: FDA-Public Use
  Company Number: 2008S1009222

PATIENT
  Sex: Female

DRUGS (5)
  1. PHOSPHOSODA FLAVOR NOT SPECIFIED [Suspect]
     Indication: COLONOSCOPY
     Dosage: ;PO
     Route: 048
     Dates: start: 20050901, end: 20050901
  2. DIOVAN [Concomitant]
  3. PRENAIR [Concomitant]
  4. GLUCOPHAGE [Concomitant]
  5. ASPIRIN [Concomitant]

REACTIONS (10)
  - ANAEMIA [None]
  - BLOOD GLUCOSE INCREASED [None]
  - DIARRHOEA [None]
  - HAEMATURIA [None]
  - NAUSEA [None]
  - NEPHRITIS ALLERGIC [None]
  - NEPHRITIS INTERSTITIAL [None]
  - RENAL FAILURE ACUTE [None]
  - RENAL TRANSPLANT [None]
  - VOMITING [None]
